FAERS Safety Report 9128928 (Version 3)
Quarter: 2013Q2

REPORT INFORMATION
  Report Type: Report from Study
  Country: JP (occurrence: JP)
  Receive Date: 20130125
  Receipt Date: 20130514
  Transmission Date: 20140414
  Serious: Yes (Hospitalization)
  Sender: FDA-Public Use
  Company Number: JP-ABBOTT-13P-087-1039699-00

PATIENT
  Age: 34 Year
  Sex: Male
  Weight: 65 kg

DRUGS (8)
  1. HUMIRA [Suspect]
     Indication: CROHN^S DISEASE
     Route: 058
     Dates: start: 20120628, end: 20120628
  2. HUMIRA [Suspect]
     Dates: start: 20120712, end: 20120712
  3. HUMIRA [Suspect]
     Dates: start: 20120726, end: 20120823
  4. HUMIRA [Suspect]
     Dates: start: 20120911
  5. REBAMIPIDE [Concomitant]
     Indication: CROHN^S DISEASE
     Route: 048
     Dates: end: 20120621
  6. MESALAZINE [Concomitant]
     Indication: CROHN^S DISEASE
     Route: 048
     Dates: end: 20120810
  7. MESALAZINE [Concomitant]
     Dates: start: 20120911
  8. PARENTERAL NUTRITION [Concomitant]
     Indication: CROHN^S DISEASE
     Dosage: 80 G - 160 G
     Route: 048
     Dates: end: 20120803

REACTIONS (2)
  - Small intestinal stenosis [Recovering/Resolving]
  - Iron deficiency anaemia [Recovered/Resolved]
